FAERS Safety Report 7025844-1 (Version None)
Quarter: 2010Q4

REPORT INFORMATION
  Report Type: 
  Country: None (occurrence: None)
  Receive Date: 20101004
  Receipt Date: 20100922
  Transmission Date: 20110411
  Serious: No
  Sender: FDA-Public Use
  Company Number: US-BIOGENIDEC-2010BI022689

PATIENT
  Age: 65 Year
  Sex: Female

DRUGS (2)
  1. TYSABRI [Suspect]
     Indication: MULTIPLE SCLEROSIS
     Route: 042
     Dates: start: 20070604, end: 20100216
  2. TYSABRI [Suspect]
     Route: 042
     Dates: start: 20100714

REACTIONS (5)
  - COGNITIVE DISORDER [None]
  - DEPRESSION [None]
  - HEMIPARESIS [None]
  - MOTOR DYSFUNCTION [None]
  - THINKING ABNORMAL [None]
